FAERS Safety Report 7988424-7 (Version None)
Quarter: 2011Q4

REPORT INFORMATION
  Report Type: 
  Country: None (occurrence: None)
  Receive Date: 20111216
  Receipt Date: 20111213
  Transmission Date: 20120403
  Serious: Yes (Hospitalization)
  Sender: FDA-Public Use
  Company Number: IT-PFIZER INC-K201100868

PATIENT
  Sex: Female

DRUGS (3)
  1. ALTACE [Suspect]
     Indication: HYPERTENSION
     Dosage: 10 MG, 1X/DAY
     Route: 048
     Dates: start: 20110522, end: 20110611
  2. OLMESARTAN MEDOXOMIL [Concomitant]
     Dosage: UNK
     Dates: start: 20110515, end: 20110522
  3. AMLODIPINE BESYLATE [Suspect]
     Indication: HYPERTENSION
     Dosage: 10 MG, 1X/DAY
     Route: 048
     Dates: start: 20110522, end: 20110611

REACTIONS (3)
  - FLUSHING [None]
  - DRUG INEFFECTIVE [None]
  - PALPITATIONS [None]
